FAERS Safety Report 21590550 (Version 3)
Quarter: 2022Q4

REPORT INFORMATION
  Report Type: Spontaneous
  Country: US (occurrence: US)
  Receive Date: 20221114
  Receipt Date: 20221208
  Transmission Date: 20230113
  Serious: No
  Sender: FDA-Public Use
  Company Number: US-002147023-NVSC2022US255067

PATIENT
  Sex: Male

DRUGS (2)
  1. AFINITOR [Suspect]
     Active Substance: EVEROLIMUS
     Indication: Product used for unknown indication
     Dosage: UNK
     Route: 065
  2. LENVIMA [Suspect]
     Active Substance: LENVATINIB
     Indication: Renal cancer
     Dosage: 8 MG, QD (START MID AUGUST 2022)
     Route: 065

REACTIONS (7)
  - Hypersomnia [Recovering/Resolving]
  - Back pain [Unknown]
  - Eating disorder [Unknown]
  - Diarrhoea [Recovered/Resolved]
  - Weight decreased [Unknown]
  - Asthenia [Unknown]
  - Dry mouth [Unknown]

NARRATIVE: CASE EVENT DATE: 20220801
